FAERS Safety Report 8435312-8 (Version None)
Quarter: 2012Q2

REPORT INFORMATION
  Report Type: 
  Country: None (occurrence: None)
  Receive Date: 20120614
  Receipt Date: 20120605
  Transmission Date: 20120825
  Serious: Yes (Other)
  Sender: FDA-Public Use
  Company Number: TH-JNJFOC-20111000579

PATIENT
  Sex: Female
  Weight: 47.5 kg

DRUGS (2)
  1. STELARA [Suspect]
     Indication: PRODUCT USED FOR UNKNOWN INDICATION
     Route: 058
     Dates: start: 20100706
  2. STELARA [Suspect]
     Route: 058
     Dates: start: 20110711

REACTIONS (1)
  - PULMONARY TUBERCULOSIS [None]
